FAERS Safety Report 8731657 (Version 3)
Quarter: 2012Q4

REPORT INFORMATION
  Report Type: 
  Country: JP (occurrence: JP)
  Receive Date: 20120820
  Receipt Date: 20121008
  Transmission Date: 20130627
  Serious: Yes (Other)
  Sender: FDA-Public Use
  Company Number: JP-NOVOPROD-357732

PATIENT
  Age: 37 Year
  Sex: Male

DRUGS (1)
  1. SUREPOST [Suspect]
     Indication: TYPE 2 DIABETES MELLITUS
     Dosage: 0.75 mg, qd
     Route: 048
     Dates: start: 20120721, end: 20120802

REACTIONS (2)
  - Hypermetropia [Unknown]
  - Blood glucose decreased [Unknown]
